FAERS Safety Report 4310559-0 (Version None)
Quarter: 2004Q1

REPORT INFORMATION
  Report Type: 
  Country: None (occurrence: None)
  Receive Date: 20040303
  Receipt Date: 20040219
  Transmission Date: 20041129
  Serious: Yes (Hospitalization)
  Sender: FDA-Public Use
  Company Number: BE-GLAXOSMITHKLINE-B0323958A

PATIENT
  Age: 47 Year
  Sex: Female
  Weight: 54 kg

DRUGS (1)
  1. ZYBAN [Suspect]
     Indication: EX-SMOKER
     Route: 048
     Dates: start: 20040124, end: 20040210

REACTIONS (2)
  - PERICARDITIS [None]
  - SENSATION OF PRESSURE [None]
